FAERS Safety Report 7295071-1 (Version None)
Quarter: 2011Q1

REPORT INFORMATION
  Report Type: 
  Country: None (occurrence: None)
  Receive Date: 20110216
  Receipt Date: 20110208
  Transmission Date: 20110831
  Serious: Yes (Hospitalization)
  Sender: FDA-Public Use
  Company Number: NL-JNJFOC-20110202942

PATIENT
  Sex: Female
  Weight: 89 kg

DRUGS (7)
  1. ALLOPURINOL [Concomitant]
     Indication: CROHN'S DISEASE
  2. REMICADE [Suspect]
     Route: 042
  3. REMICADE [Suspect]
     Indication: CROHN'S DISEASE
     Route: 042
  4. AZATHIOPRINE [Concomitant]
     Indication: CROHN'S DISEASE
  5. ANDROCUR [Concomitant]
     Indication: HIDRADENITIS
  6. CALCICHEW [Concomitant]
     Indication: OSTEOPENIA
  7. REMICADE [Suspect]
     Route: 042

REACTIONS (1)
  - MENINGIOMA [None]
